FAERS Safety Report 6133091-0 (Version None)
Quarter: 2009Q1

REPORT INFORMATION
  Report Type: 
  Country: None (occurrence: None)
  Receive Date: 20090326
  Receipt Date: 20090320
  Transmission Date: 20090719
  Serious: Yes (Other)
  Sender: FDA-Public Use
  Company Number: US-BIOGENIDEC-2008BI031300

PATIENT
  Age: 42 Year
  Sex: Female

DRUGS (1)
  1. TYSABRI [Suspect]
     Indication: MULTIPLE SCLEROSIS
     Route: 042
     Dates: start: 20080811, end: 20081006

REACTIONS (5)
  - ANAPHYLACTIC SHOCK [None]
  - FATIGUE [None]
  - HYPERSENSITIVITY [None]
  - MUSCULAR WEAKNESS [None]
  - PAIN IN EXTREMITY [None]
